FAERS Safety Report 8067364-1 (Version None)
Quarter: 2012Q1

REPORT INFORMATION
  Report Type: 
  Country: None (occurrence: None)
  Receive Date: 20120124
  Receipt Date: 20120119
  Transmission Date: 20120608
  Serious: Yes (Hospitalization)
  Sender: FDA-Public Use
  Company Number: FR-PFIZER INC-K200900254

PATIENT
  Age: 54 Year
  Sex: Male

DRUGS (12)
  1. FUROSEMIDE [Suspect]
     Indication: RENAL IMPAIRMENT
     Dosage: 40 MG, 1X/DAY
     Route: 048
     Dates: end: 20080821
  2. NEURONTIN [Concomitant]
     Indication: POLYNEUROPATHY ALCOHOLIC
     Dosage: 1800 MG, UNK
  3. PRAMIPEXOLE DIHYDROCHLORIDE [Concomitant]
     Indication: POLYNEUROPATHY ALCOHOLIC
     Dosage: 0.18 MG, UNK
     Route: 048
  4. HYDROCHLOROTHIAZIDE [Suspect]
     Indication: HYPERTENSION
     Dosage: 25 MG, UNK
     Route: 048
     Dates: end: 20080821
  5. PANTOPRAZOLE [Concomitant]
     Indication: PROPHYLAXIS AGAINST GASTROINTESTINAL ULCER
     Dosage: 40 MG, UNK
     Route: 048
  6. ALTACE [Suspect]
     Indication: HYPERTENSION
     Dosage: 5 MG, 1X/DAY
     Route: 048
     Dates: start: 19900101
  7. PREGABALIN [Concomitant]
     Indication: POLYNEUROPATHY ALCOHOLIC
     Dosage: 150 UG/KG, UNK
     Route: 048
  8. SPIRIVA [Concomitant]
     Indication: CHRONIC OBSTRUCTIVE PULMONARY DISEASE
     Dosage: UNK
     Route: 055
  9. BISOPROLOL [Suspect]
     Indication: CORONARY ARTERY DISEASE
     Dosage: 5 MG, 2X/DAY
     Route: 048
  10. FALITHROM [Concomitant]
     Indication: PULMONARY EMBOLISM
     Dosage: UNK
     Route: 048
     Dates: start: 20070401
  11. BEROTEC [Concomitant]
     Indication: CHRONIC OBSTRUCTIVE PULMONARY DISEASE
     Route: 055
  12. SIMVASTATIN [Concomitant]
     Indication: CORONARY ARTERY DISEASE
     Dosage: 20 MG, UNK
     Route: 048

REACTIONS (5)
  - DEHYDRATION [None]
  - CARDIO-RESPIRATORY ARREST [None]
  - INTERNATIONAL NORMALISED RATIO INCREASED [None]
  - PROTHROMBIN TIME PROLONGED [None]
  - ELECTROLYTE IMBALANCE [None]
